FAERS Safety Report 10652004 (Version 2)
Quarter: 2015Q1

REPORT INFORMATION
  Report Type: Spontaneous
  Country: US (occurrence: US)
  Receive Date: 20141215
  Receipt Date: 20150126
  Transmission Date: 20150720
  Serious: No
  Sender: FDA-Public Use
  Company Number: US-PFIZER INC-2014338720

PATIENT
  Age: 51 Year
  Sex: Male

DRUGS (4)
  1. VENLAFAXINE HCL [Suspect]
     Active Substance: VENLAFAXINE HYDROCHLORIDE
     Indication: MIGRAINE
     Dosage: 75 MG, 1X/DAY
  2. BUSPAR [Concomitant]
     Active Substance: BUSPIRONE HYDROCHLORIDE
     Dosage: 15 MG, 1X/DAY
  3. PROTONIX [Concomitant]
     Active Substance: PANTOPRAZOLE SODIUM
     Dosage: 40 MG, UNK
  4. EFFEXOR XR [Concomitant]
     Active Substance: VENLAFAXINE HYDROCHLORIDE
     Dosage: UNK

REACTIONS (15)
  - Gait disturbance [Unknown]
  - Visual acuity reduced [Recovered/Resolved]
  - Nausea [Unknown]
  - Drug ineffective [Recovered/Resolved]
  - Migraine [Recovered/Resolved]
  - Muscular weakness [Unknown]
  - Speech disorder [Unknown]
  - Anxiety [Unknown]
  - Headache [Unknown]
  - Visual field defect [Unknown]
  - Confusional state [Unknown]
  - Amnesia [Unknown]
  - Paraesthesia [Recovered/Resolved]
  - Cerebrovascular disorder [Recovered/Resolved]
  - Hypoaesthesia [Unknown]
